FAERS Safety Report 5455693-7 (Version None)
Quarter: 2007Q3

REPORT INFORMATION
  Report Type: 
  Country: None (occurrence: None)
  Receive Date: 20070918
  Receipt Date: 20070228
  Transmission Date: 20080115
  Serious: No
  Sender: FDA-Public Use
  Company Number: US-ASTRAZENECA-2006UW22178

PATIENT
  Age: 52 Year
  Sex: Female
  Weight: 53.6 kg

DRUGS (5)
  1. SEROQUEL [Suspect]
     Indication: DEPRESSION
     Dosage: 25 MG - 200 MG/DAY
     Route: 048
     Dates: start: 19970101, end: 20061001
  2. RISPERDAL [Suspect]
  3. ZYPREXA [Suspect]
  4. GEODON [Concomitant]
     Dates: start: 20050701, end: 20060201
  5. METFORMIN HCL [Concomitant]
     Indication: DIABETES MELLITUS
     Dates: start: 20040201

REACTIONS (2)
  - DIABETES MELLITUS [None]
  - HERNIA [None]
